FAERS Safety Report 9260291 (Version 1)
Quarter: 2013Q2

REPORT INFORMATION
  Report Type: Spontaneous
  Country: US (occurrence: US)
  Receive Date: 20130429
  Receipt Date: 20130429
  Transmission Date: 20140414
  Serious: Yes (Hospitalization)
  Sender: FDA-Public Use
  Company Number: US-BAYER-2013-052058

PATIENT
  Age: 44 Year
  Sex: Female
  Weight: 93.7 kg

DRUGS (6)
  1. YASMIN [Suspect]
  2. OCELLA [Suspect]
  3. NAPROXEN [Concomitant]
  4. CIPROFLOXACIN [Concomitant]
  5. VICODIN [Concomitant]
  6. ORTHELLO [Concomitant]

REACTIONS (1)
  - Pulmonary embolism [None]
